FAERS Safety Report 9112715 (Version 1)
Quarter: 2013Q1

REPORT INFORMATION
  Report Type: Spontaneous
  Country: US (occurrence: US)
  Receive Date: 20130211
  Receipt Date: 20130211
  Transmission Date: 20140127
  Serious: No
  Sender: FDA-Public Use
  Company Number: US-009507513-1302USA000245

PATIENT
  Sex: Female

DRUGS (2)
  1. LOSARTAN POTASSIUM [Suspect]
  2. ARMOUR THYROID TABLETS [Concomitant]
     Indication: THYROID DISORDER

REACTIONS (2)
  - Drug ineffective [Unknown]
  - Adverse event [Unknown]
